FAERS Safety Report 20306406 (Version 1)
Quarter: 2022Q1

REPORT INFORMATION
  Report Type: Spontaneous
  Country: CN (occurrence: CN)
  Receive Date: 20220106
  Receipt Date: 20220106
  Transmission Date: 20220423
  Serious: Yes (Other)
  Sender: FDA-Public Use
  Company Number: CN-PFIZER INC-202101878476

PATIENT
  Age: 15 Year
  Sex: Male
  Weight: 56.5 kg

DRUGS (4)
  1. SERTRALINE HYDROCHLORIDE [Suspect]
     Active Substance: SERTRALINE HYDROCHLORIDE
     Indication: Stereotypy
     Dosage: 50MG, 1X/DAY
     Route: 048
     Dates: start: 20211007, end: 20211108
  2. SERTRALINE HYDROCHLORIDE [Suspect]
     Active Substance: SERTRALINE HYDROCHLORIDE
     Indication: Impulse-control disorder
  3. HALOPERIDOL [Suspect]
     Active Substance: HALOPERIDOL
     Indication: Stereotypy
     Dosage: 5.000 MG, 1X/DAY
     Route: 030
     Dates: start: 20211007, end: 20211007
  4. HALOPERIDOL [Suspect]
     Active Substance: HALOPERIDOL
     Indication: Impulse-control disorder

REACTIONS (4)
  - Extrapyramidal disorder [Recovered/Resolved]
  - Head lag [Recovered/Resolved]
  - Hypertonia [Recovered/Resolved]
  - Off label use [Unknown]

NARRATIVE: CASE EVENT DATE: 20211007
